FAERS Safety Report 6058241-6 (Version None)
Quarter: 2009Q1

REPORT INFORMATION
  Report Type: 
  Country: None (occurrence: None)
  Receive Date: 20090127
  Receipt Date: 20090127
  Transmission Date: 20090719
  Serious: Yes (Life-Threatening, Hospitalization, Disabling)
  Sender: FDA-Public Use
  Company Number: None

PATIENT
  Sex: Female
  Weight: 54.4316 kg

DRUGS (1)
  1. FOSAMAX [Suspect]
     Indication: OSTEOPENIA
     Dosage: ONCE WEEKLY PO (047) TEN-FIFTEEN YEAR
     Route: 048

REACTIONS (3)
  - FEMUR FRACTURE [None]
  - PATHOLOGICAL FRACTURE [None]
  - STRESS FRACTURE [None]
